FAERS Safety Report 6395069-1 (Version None)
Quarter: 2009Q4

REPORT INFORMATION
  Report Type: 
  Country: None (occurrence: None)
  Receive Date: 20091009
  Receipt Date: 20090929
  Transmission Date: 20100525
  Serious: Yes (Other)
  Sender: FDA-Public Use
  Company Number: US-PFIZER INC-2009265359

PATIENT
  Sex: Female
  Weight: 81.646 kg

DRUGS (1)
  1. BEXTRA [Suspect]
     Indication: RHEUMATOID ARTHRITIS
     Dosage: UNK

REACTIONS (2)
  - BLOOD GLUCOSE DECREASED [None]
  - URTICARIA [None]
